FAERS Safety Report 6843742-0 (Version None)
Quarter: 2010Q2

REPORT INFORMATION
  Report Type: 
  Country: None (occurrence: None)
  Receive Date: 20100629
  Receipt Date: 20100318
  Transmission Date: 20101027
  Serious: No
  Sender: FDA-Public Use
  Company Number: US-WYE-H14259410

PATIENT
  Age: 28 Year
  Weight: 88.53 kg

DRUGS (8)
  1. PRISTIQ [Suspect]
     Indication: DEPRESSION
     Dosage: 50 MG 1X PER 1 DAY, ORAL
     Route: 048
     Dates: start: 20100101
  2. YAZ [Concomitant]
  3. TOPAMAX [Concomitant]
  4. FOLIC ACID [Concomitant]
  5. SINGULAIR [Concomitant]
  6. LEVOTHYROXINE SODIUM [Concomitant]
  7. NEXIUM [Concomitant]
  8. CELEXA [Concomitant]

REACTIONS (1)
  - CONSTIPATION [None]
